FAERS Safety Report 12299755 (Version 1)
Quarter: 2016Q2

REPORT INFORMATION
  Report Type: Spontaneous
  Country: PL (occurrence: PL)
  Receive Date: 20160425
  Receipt Date: 20160425
  Transmission Date: 20160815
  Serious: Yes (Other)
  Sender: FDA-Public Use
  Company Number: PHHY2016PL054897

PATIENT
  Age: 15 Year
  Sex: Male
  Weight: 30 kg

DRUGS (3)
  1. SANDIMMUN NEORAL [Suspect]
     Active Substance: CYCLOSPORINE
     Indication: BONE MARROW TRANSPLANT
     Dosage: 250 MG, QD
     Route: 065
  2. SANDIMMUN NEORAL [Suspect]
     Active Substance: CYCLOSPORINE
     Dosage: 120 MG, QD
     Route: 065
  3. SANDIMMUN NEORAL [Suspect]
     Active Substance: CYCLOSPORINE
     Dosage: 75-100 MG, QD
     Route: 065

REACTIONS (11)
  - Growth retardation [Unknown]
  - Staphylococcal infection [Unknown]
  - Visual field defect [Unknown]
  - Serum ferritin increased [Not Recovered/Not Resolved]
  - Hepatic steatosis [Unknown]
  - Device related infection [Unknown]
  - Atrial septal defect [Unknown]
  - Body mass index increased [Unknown]
  - Drug level fluctuating [Not Recovered/Not Resolved]
  - Secondary hypogonadism [Unknown]
  - Cataract [Unknown]
